FAERS Safety Report 25174849 (Version 1)
Quarter: 2025Q2

REPORT INFORMATION
  Report Type: Spontaneous
  Country: FR (occurrence: FR)
  Receive Date: 20250408
  Receipt Date: 20250408
  Transmission Date: 20250716
  Serious: Yes (Other)
  Sender: PFIZER
  Company Number: None

PATIENT
  Age: 52 Year
  Sex: Male
  Weight: 74 kg

DRUGS (5)
  1. CYTARABINE [Suspect]
     Active Substance: CYTARABINE
     Indication: Acute myeloid leukaemia
     Dosage: 380 MG, 1X/DAY (CYCLIC, 200 MG/M2)
     Route: 042
     Dates: start: 20120322, end: 20120328
  2. CYTARABINE [Suspect]
     Active Substance: CYTARABINE
     Dosage: 5650 MG, 2X/DAY (AT 3000 MG/M2 (I.E. 5650 MG) AT D 1, D 3 AND D 5)
     Route: 042
     Dates: start: 20120425, end: 20120429
  3. CYTARABINE [Suspect]
     Active Substance: CYTARABINE
     Route: 042
     Dates: start: 20120530, end: 20120615
  4. CERUBIDINE [Suspect]
     Active Substance: DAUNORUBICIN HYDROCHLORIDE
     Indication: Acute myeloid leukaemia
     Dosage: 170 MG, 1X/DAY (CYCLIC, 90 MG/M2)
     Route: 042
     Dates: start: 20120322, end: 20120324
  5. VANCOMYCIN HYDROCHLORIDE [Concomitant]
     Active Substance: VANCOMYCIN HYDROCHLORIDE
     Indication: Pyrexia
     Route: 051
     Dates: start: 20120329, end: 20120404

REACTIONS (4)
  - Dermatitis bullous [Recovered/Resolved]
  - Skin exfoliation [Recovered/Resolved]
  - Palmar-plantar erythrodysaesthesia syndrome [Recovered/Resolved]
  - Urticaria [Recovered/Resolved]

NARRATIVE: CASE EVENT DATE: 20120330
